FAERS Safety Report 10528748 (Version 2)
Quarter: 2014Q4

REPORT INFORMATION
  Report Type: Spontaneous
  Country: JP (occurrence: JP)
  Receive Date: 20141020
  Receipt Date: 20141020
  Transmission Date: 20150528
  Serious: Yes (Death)
  Sender: FDA-Public Use
  Company Number: JP-BAYER-2013-017255

PATIENT
  Age: 71 Year
  Sex: Male
  Weight: 43 kg

DRUGS (8)
  1. CYTOTEC [Concomitant]
     Active Substance: MISOPROSTOL
     Dosage: DAILY DOSE 600 ?G
     Route: 048
  2. UFT [Concomitant]
     Active Substance: TEGAFUR\URACIL
     Dosage: UNK
     Route: 048
  3. LOXONIN [Concomitant]
     Active Substance: LOXOPROFEN SODIUM
     Dosage: DAILY DOSE 180 MG
     Route: 048
  4. TAKEPRON [Concomitant]
     Active Substance: LANSOPRAZOLE
     Dosage: DAILY DOSE 15 MG
     Route: 048
  5. NEXAVAR [Suspect]
     Active Substance: SORAFENIB
     Indication: HEPATOCELLULAR CARCINOMA
     Dosage: 200 MG, BID
     Route: 048
     Dates: start: 20121011, end: 20121128
  6. ULCERLMIN [Concomitant]
     Active Substance: SUCRALFATE
     Dosage: DAILY DOSE 30 ML
     Route: 048
  7. OLMETEC [Concomitant]
     Active Substance: OLMESARTAN MEDOXOMIL
     Dosage: DAILY DOSE 10 MG
     Route: 048
  8. TRAMAL [Concomitant]
     Active Substance: TRAMADOL
     Dosage: DAILY DOSE 125 MG
     Route: 048

REACTIONS (5)
  - Blood pressure increased [Recovering/Resolving]
  - Hepatocellular carcinoma [Fatal]
  - Dysphonia [Recovering/Resolving]
  - Chest pain [Recovering/Resolving]
  - Cough [Recovered/Resolved]

NARRATIVE: CASE EVENT DATE: 20121128
